FAERS Safety Report 23927437 (Version 2)
Quarter: 2024Q2

REPORT INFORMATION
  Report Type: Report from Study
  Country: US (occurrence: US)
  Receive Date: 20240531
  Receipt Date: 20240619
  Transmission Date: 20240716
  Serious: Yes (Death, Hospitalization)
  Sender: FDA-Public Use
  Company Number: US-Eisai-EC-2024-166746

PATIENT
  Age: 66 Year
  Sex: Female
  Weight: 86.7 kg

DRUGS (1)
  1. LENVIMA [Suspect]
     Active Substance: LENVATINIB
     Indication: Endometrial cancer
     Route: 048
     Dates: start: 202405

REACTIONS (3)
  - Asthenia [Unknown]
  - Hypophagia [Unknown]
  - Death [Fatal]

NARRATIVE: CASE EVENT DATE: 20240501
